FAERS Safety Report 4689990-X (Version None)
Quarter: 2005Q2

REPORT INFORMATION
  Report Type: 
  Country: None (occurrence: None)
  Receive Date: 20050608
  Receipt Date: 20040527
  Transmission Date: 20051028
  Serious: Yes (Hospitalization)
  Sender: FDA-Public Use
  Company Number: 369547

PATIENT
  Age: 33 Year
  Sex: Female
  Weight: 81.7 kg

DRUGS (4)
  1. ACCUTANE [Suspect]
     Indication: ACNE
     Dosage: ORAL
     Route: 048
     Dates: start: 20040101, end: 20040315
  2. TOPAMAX [Concomitant]
  3. PAXIL [Concomitant]
  4. BEXTRA [Concomitant]

REACTIONS (1)
  - PANCREATITIS [None]
